FAERS Safety Report 7605645-3 (Version None)
Quarter: 2011Q3

REPORT INFORMATION
  Report Type: 
  Country: None (occurrence: None)
  Receive Date: 20110713
  Receipt Date: 20110713
  Transmission Date: 20111222
  Serious: Yes (Life-Threatening)
  Sender: FDA-Public Use
  Company Number: None

PATIENT
  Age: 68 Year
  Sex: Male
  Weight: 79.832 kg

DRUGS (1)
  1. TNKASE [Suspect]
     Indication: ACUTE MYOCARDIAL INFARCTION
     Dosage: TNKASE
     Route: 040
     Dates: start: 20110626, end: 20110626

REACTIONS (3)
  - HEADACHE [None]
  - CEREBRAL HAEMORRHAGE [None]
  - NAUSEA [None]
